FAERS Safety Report 18239162 (Version 1)
Quarter: 2020Q3

REPORT INFORMATION
  Report Type: Spontaneous
  Country: JP (occurrence: JP)
  Receive Date: 20200907
  Receipt Date: 20200907
  Transmission Date: 20201103
  Serious: Yes (Hospitalization)
  Sender: FDA-Public Use
  Company Number: JP-JNJFOC-A-CH2020-201457

PATIENT
  Age: 72 Year
  Sex: Female
  Weight: 44.6 kg

DRUGS (2)
  1. PIMOBENDAN [Concomitant]
     Active Substance: PIMOBENDAN
     Dosage: 5 MG, QD
     Dates: start: 20190719
  2. UPTRAVI [Suspect]
     Active Substance: SELEXIPAG
     Indication: PULMONARY ARTERIAL HYPERTENSION
     Dosage: 0.2 MG, BID
     Route: 048
     Dates: start: 20190626, end: 20190801

REACTIONS (1)
  - Fracture [Recovering/Resolving]

NARRATIVE: CASE EVENT DATE: 20190801
